FAERS Safety Report 9614577 (Version 2)
Quarter: 2013Q4

REPORT INFORMATION
  Report Type: Spontaneous
  Country: BE (occurrence: BE)
  Receive Date: 20131011
  Receipt Date: 20131015
  Transmission Date: 20140711
  Serious: Yes (Hospitalization)
  Sender: FDA-Public Use
  Company Number: PHHY2013BE113951

PATIENT
  Age: 71 Year
  Sex: Female
  Weight: 66.4 kg

DRUGS (1)
  1. FEMARA [Suspect]
     Dosage: ONCE DAILY
     Dates: start: 2011

REACTIONS (5)
  - Colitis ischaemic [Unknown]
  - Haematochezia [Unknown]
  - Abdominal pain [Unknown]
  - Diarrhoea [Unknown]
  - Decreased appetite [Unknown]
